FAERS Safety Report 21661416 (Version 2)
Quarter: 2022Q4

REPORT INFORMATION
  Report Type: Spontaneous
  Country: DE (occurrence: DE)
  Receive Date: 20221130
  Receipt Date: 20221227
  Transmission Date: 20230113
  Serious: Yes (Hospitalization, Other)
  Sender: FDA-Public Use
  Company Number: DE-Medice Arzneimittel-MDKASPO26788

PATIENT
  Age: 47 Year
  Sex: Male
  Weight: 75 kg

DRUGS (7)
  1. LISDEXAMFETAMINE DIMESYLATE [Suspect]
     Active Substance: LISDEXAMFETAMINE DIMESYLATE
     Indication: Attention deficit hyperactivity disorder
     Dosage: 50 MILLIGRAM, QD
     Route: 048
     Dates: start: 20220928, end: 20221019
  2. METHYLPHENIDATE [Suspect]
     Active Substance: METHYLPHENIDATE
     Indication: Attention deficit hyperactivity disorder
     Dosage: 50 MILLIGRAM, QD
     Route: 048
     Dates: start: 20200716, end: 20220928
  3. AMLODIPINE BESYLATE [Concomitant]
     Active Substance: AMLODIPINE BESYLATE
     Indication: Hypertension
     Dosage: 5 MILLIGRAM, Q12H
     Route: 048
     Dates: start: 20200707
  4. LEVOTHYROXINE [Concomitant]
     Active Substance: LEVOTHYROXINE
     Dosage: 75 MILLIGRAM, QD
     Route: 048
     Dates: start: 20200707
  5. IBUPROFEN [Concomitant]
     Active Substance: IBUPROFEN
     Indication: Neck pain
     Dosage: 600 MILLIGRAM, Q12H
     Route: 065
  6. RAMIPRIL [Concomitant]
     Active Substance: RAMIPRIL
     Indication: Hypertension
     Dosage: 5 MILLIGRAM, Q12H
     Route: 048
     Dates: start: 20200707
  7. ATORVASTATIN [Concomitant]
     Active Substance: ATORVASTATIN
     Indication: Hypercholesterolaemia
     Dosage: 40 MILLIGRAM, QD
     Route: 048
     Dates: start: 20221027

REACTIONS (4)
  - Central nervous system vasculitis [Recovered/Resolved]
  - Cerebral infarction [Recovered/Resolved]
  - Hemihypoaesthesia [Recovered/Resolved]
  - Overdose [Recovered/Resolved]

NARRATIVE: CASE EVENT DATE: 20221014
